FAERS Safety Report 24738473 (Version 1)
Quarter: 2024Q4

REPORT INFORMATION
  Report Type: Spontaneous
  Country: CA (occurrence: CA)
  Receive Date: 20241216
  Receipt Date: 20241216
  Transmission Date: 20250114
  Serious: Yes (Other)
  Sender: MERCK
  Company Number: CA-009507513-2412CAN004067

PATIENT
  Age: 52 Year
  Sex: Male

DRUGS (21)
  1. KEYTRUDA [Suspect]
     Active Substance: PEMBROLIZUMAB
     Indication: Pancreatic carcinoma metastatic
     Dosage: UNK
     Route: 065
  2. CAPECITABINE [Suspect]
     Active Substance: CAPECITABINE
     Indication: Pancreatic carcinoma metastatic
     Dosage: UNK
     Route: 065
  3. DOCETAXEL [Suspect]
     Active Substance: DOCETAXEL
     Indication: Product used for unknown indication
     Dosage: UNK
     Route: 065
  4. GEMCITABINE [Suspect]
     Active Substance: GEMCITABINE
     Indication: Pancreatic carcinoma metastatic
     Dosage: UNK
     Route: 065
  5. LORBRENA [Suspect]
     Active Substance: LORLATINIB
     Indication: Pancreatic carcinoma metastatic
     Dosage: UNK
     Route: 065
  6. OXALIPLATIN [Suspect]
     Active Substance: OXALIPLATIN
     Indication: Pancreatic carcinoma metastatic
     Dosage: UNK
     Route: 065
  7. PEMETREXED [Suspect]
     Active Substance: PEMETREXED
     Indication: Pancreatic carcinoma metastatic
     Dosage: UNK, FORMULATION: POWDER FOR SOLUTION
     Route: 065
  8. TRASTUZUMAB [Suspect]
     Active Substance: TRASTUZUMAB
     Indication: Pancreatic carcinoma metastatic
     Dosage: UNK
     Route: 065
  9. CISPLATIN [Concomitant]
     Active Substance: CISPLATIN
     Dosage: UNK
     Route: 042
  10. ENHERTU [Concomitant]
     Active Substance: FAM-TRASTUZUMAB DERUXTECAN-NXKI
     Dosage: UNK, FORMULATION: POWDER FOR SOLUTION
     Route: 042
  11. FLUOROURACIL [Concomitant]
     Active Substance: FLUOROURACIL
     Dosage: UNK
     Route: 065
  12. LEUCOVORIN [Concomitant]
     Active Substance: LEUCOVORIN\LEUCOVORIN CALCIUM
     Dosage: UNK
     Route: 065
  13. IRINOTECAN HYDROCHLORIDE [Concomitant]
     Active Substance: IRINOTECAN HYDROCHLORIDE
     Dosage: UNK, FORMULATION: SOLUTION
     Route: 042
  14. MITOMYCIN [Concomitant]
     Active Substance: MITOMYCIN
     Dosage: UNK, FORMULATION: POWDER FOR SOLUTION INTRAVESICULAR
     Route: 065
  15. PACLITAXEL [Concomitant]
     Active Substance: PACLITAXEL
     Dosage: UNK, FORMULATION: LIQUID INTRAVENOUS
     Route: 042
  16. BEVACIZUMAB [Concomitant]
     Active Substance: BEVACIZUMAB
     Route: 042
  17. DEMCIZUMAB [Concomitant]
     Active Substance: DEMCIZUMAB
     Dosage: UNK
     Route: 065
  18. AMILOMER [Concomitant]
     Active Substance: AMILOMER
     Dosage: UNK
     Route: 065
  19. ALUNBRIG [Concomitant]
     Active Substance: BRIGATINIB
     Dosage: UNK
     Route: 065
  20. OSIMERTINIB [Concomitant]
     Active Substance: OSIMERTINIB
     Dosage: UNK
     Route: 065
  21. PERTUZUMAB [Concomitant]
     Active Substance: PERTUZUMAB
     Dosage: UNK
     Route: 065

REACTIONS (1)
  - Pancytopenia [Unknown]
